FAERS Safety Report 8208603-3 (Version None)
Quarter: 2012Q1

REPORT INFORMATION
  Report Type: 
  Country: None (occurrence: None)
  Receive Date: 20120314
  Receipt Date: 20120309
  Transmission Date: 20120608
  Serious: Yes (Other)
  Sender: FDA-Public Use
  Company Number: GB-GLAXOSMITHKLINE-B0787510A

PATIENT
  Sex: Female

DRUGS (4)
  1. DICLOFENAC SODIUM [Concomitant]
     Dosage: 50MG THREE TIMES PER DAY
  2. DIHYDROCODEINE BITARTRATE INJ [Concomitant]
  3. SUMATRIPTAN SUCCINATE [Suspect]
     Indication: MIGRAINE
     Dosage: 50MG AS REQUIRED
     Route: 048
     Dates: start: 20000101
  4. AMITRIPTYLINE HCL [Concomitant]
     Dosage: 10MG AT NIGHT

REACTIONS (3)
  - VISION BLURRED [None]
  - EYE PAIN [None]
  - VISUAL ACUITY REDUCED [None]
